FAERS Safety Report 10308010 (Version 1)
Quarter: 2014Q3

REPORT INFORMATION
  Report Type: Spontaneous
  Country: US (occurrence: US)
  Receive Date: 20140716
  Receipt Date: 20140716
  Transmission Date: 20150326
  Serious: Yes (Death)
  Sender: FDA-Public Use
  Company Number: US-BAYER-2014-102357

PATIENT
  Age: 61 Year
  Sex: Female
  Weight: 57 kg

DRUGS (1)
  1. CAMPHO-PHENIQUE ANTISEPTIC LIQUID [Suspect]
     Active Substance: CAMPHORATED PHENOL
     Indication: TINEA INFECTION
     Dosage: MORE THAN ONCE A DAY, PRN
     Route: 061

REACTIONS (2)
  - Intentional product misuse [None]
  - Colon cancer [Fatal]

NARRATIVE: CASE EVENT DATE: 19870409
